FAERS Safety Report 8885514 (Version 1)
Quarter: 2012Q4

REPORT INFORMATION
  Report Type: 
  Country: ES (occurrence: ES)
  Receive Date: 20121101
  Receipt Date: 20121101
  Transmission Date: 20130627
  Serious: Yes (Hospitalization)
  Sender: FDA-Public Use
  Company Number: ES-PFIZER INC-2012270219

PATIENT
  Age: 40 Year
  Sex: Male

DRUGS (2)
  1. METHOTREXATE SODIUM [Suspect]
     Indication: POLYARTHRITIS
     Dosage: 10 mg, 1x/day
     Route: 048
     Dates: start: 20120601, end: 20120620
  2. SULFASALAZINE [Interacting]
     Indication: POLYARTHRITIS
     Dosage: 2 g, 1x/day
     Route: 048
     Dates: start: 200808, end: 20120620

REACTIONS (2)
  - Hepatitis [Recovered/Resolved]
  - Drug interaction [Recovered/Resolved]
